FAERS Safety Report 9865682 (Version 1)
Quarter: 2014Q1

REPORT INFORMATION
  Report Type: Spontaneous
  Country: US (occurrence: US)
  Receive Date: 20140203
  Receipt Date: 20140203
  Transmission Date: 20141002
  Serious: No
  Sender: FDA-Public Use
  Company Number: US-ALLERGAN-1306937US

PATIENT
  Age: 82 Year
  Sex: Female

DRUGS (9)
  1. RESTASIS [Suspect]
     Indication: DRY EYE
     Dosage: 2 GTT, BID
     Route: 047
  2. LOTEMAX [Concomitant]
     Indication: DRY EYE
     Dosage: 2 GTT, QAM
     Route: 047
  3. ACTONEL [Concomitant]
     Indication: OSTEOPOROSIS
     Dosage: UNK
     Route: 048
  4. ACTONEL [Concomitant]
     Indication: OSTEITIS DEFORMANS
  5. FISH OIL [Concomitant]
     Indication: PRODUCT USED FOR UNKNOWN INDICATION
  6. OTC LUBRICATING EYE NOS [Concomitant]
     Indication: DRY EYE
     Dosage: 2 GTT, PRN
     Route: 047
  7. EYE OINTMENT OTC [Concomitant]
     Indication: DRY EYE
     Dosage: UNK, QHS
     Route: 047
  8. BLOOD PRESSURE MEDICINENAME NOS [Concomitant]
     Indication: CARDIOVASCULAR EVENT PROPHYLAXIS
  9. AMLODIPINE [Concomitant]
     Indication: HYPERTENSION
     Dosage: UNK UNK, QD
     Route: 048

REACTIONS (1)
  - Blood pressure increased [Not Recovered/Not Resolved]
